FAERS Safety Report 5340206-0 (Version None)
Quarter: 2007Q2

REPORT INFORMATION
  Report Type: 
  Country: None (occurrence: None)
  Receive Date: 20070405
  Receipt Date: 20061227
  Transmission Date: 20071010
  Serious: No
  Sender: FDA-Public Use
  Company Number: US200612004614

PATIENT
  Age: 55 Year
  Sex: Male

DRUGS (9)
  1. CYMBALTA [Suspect]
     Indication: DEPRESSION
     Dosage: 60 MG DAILY (1/D), ORAL
     Route: 048
     Dates: start: 20061001
  2. LISINOPRIL [Concomitant]
  3. ZOCOR [Concomitant]
  4. TERAZOSIN HCL [Concomitant]
  5. DICLOFENAC (DICLOFENAC) [Concomitant]
  6. OMEPRAZOLE [Concomitant]
  7. OXYBUTYNIN CHLORIDE [Concomitant]
  8. ISOSORBIDE MONONITRATE [Concomitant]
  9. ASPIRIN [Concomitant]

REACTIONS (5)
  - COMMUNICATION DISORDER [None]
  - DISTURBANCE IN ATTENTION [None]
  - IRRITABILITY [None]
  - MENTAL IMPAIRMENT [None]
  - RESTLESSNESS [None]
